FAERS Safety Report 5695644-3 (Version None)
Quarter: 2008Q2

REPORT INFORMATION
  Report Type: 
  Country: None (occurrence: None)
  Receive Date: 20080407
  Receipt Date: 20071125
  Transmission Date: 20081010
  Serious: No
  Sender: FDA-Public Use
  Company Number: US-BAYER-200715351NA

PATIENT
  Age: 24 Year
  Sex: Female
  Weight: 48 kg

DRUGS (2)
  1. MIRENA [Suspect]
     Indication: CONTRACEPTION
     Route: 015
     Dates: start: 20071114, end: 20071205
  2. APRI [Concomitant]
     Indication: ORAL CONTRACEPTION
     Dates: start: 19980101, end: 20070101

REACTIONS (6)
  - ABDOMINAL PAIN LOWER [None]
  - BACK PAIN [None]
  - DYSPAREUNIA [None]
  - METRORRHAGIA [None]
  - PELVIC PAIN [None]
  - POST PROCEDURAL DISCOMFORT [None]
